FAERS Safety Report 4463724-6 (Version None)
Quarter: 2004Q4

REPORT INFORMATION
  Report Type: 
  Country: None (occurrence: None)
  Receive Date: 20041001
  Receipt Date: 20040928
  Transmission Date: 20050328
  Serious: Yes (Death)
  Sender: FDA-Public Use
  Company Number: US-JNJFOC-20040801370

PATIENT
  Sex: Female
  Weight: 51.26 kg

DRUGS (19)
  1. LEVAQUIN [Suspect]
     Indication: PNEUMONIA
     Route: 042
  2. SYNTHROID [Concomitant]
  3. NASACORT [Concomitant]
     Route: 055
  4. ATROVENT [Concomitant]
     Route: 055
  5. CALCIUM [Concomitant]
  6. ACCUPRIL [Concomitant]
  7. NASONEX [Concomitant]
     Route: 055
  8. ALLEGRA [Concomitant]
  9. HYDROXYZINE [Concomitant]
  10. OXYCONTIN [Concomitant]
  11. AMBIEN [Concomitant]
  12. NEURONTIN [Concomitant]
  13. HYDROCHLOROTHIAZIDE [Concomitant]
  14. NORVASC [Concomitant]
  15. ELAVIL [Concomitant]
  16. LORAZEPAM [Concomitant]
  17. VIOXX [Concomitant]
  18. TRIAMSILILONE [Concomitant]
  19. DETROL LA [Concomitant]

REACTIONS (4)
  - CARDIAC ARREST [None]
  - COMA [None]
  - CORONARY ARTERY ATHEROSCLEROSIS [None]
  - CORONARY ARTERY INSUFFICIENCY [None]
